FAERS Safety Report 7008401-2 (Version None)
Quarter: 2010Q3

REPORT INFORMATION
  Report Type: 
  Country: None (occurrence: None)
  Receive Date: 20100922
  Receipt Date: 20100915
  Transmission Date: 20110219
  Serious: Yes (Hospitalization)
  Sender: FDA-Public Use
  Company Number: B0674550A

PATIENT
  Age: 44 Year
  Weight: 87 kg

DRUGS (2)
  1. PAROXETINE HCL [Suspect]
     Indication: DEPRESSION
     Route: 048
     Dates: start: 20100322, end: 20100324
  2. OMEPRAZOLE [Concomitant]
     Route: 048
     Dates: start: 20091201

REACTIONS (3)
  - CHEST PAIN [None]
  - DIZZINESS [None]
  - TREMOR [None]
